FAERS Safety Report 10479956 (Version 1)
Quarter: 2014Q3

REPORT INFORMATION
  Report Type: Spontaneous
  Country: JP (occurrence: JP)
  Receive Date: 20140929
  Receipt Date: 20140929
  Transmission Date: 20150326
  Serious: Yes (Death)
  Sender: FDA-Public Use
  Company Number: JP-009507513-1409JPN013206

PATIENT
  Age: 78 Year
  Sex: Female

DRUGS (1)
  1. STROMECTOL [Suspect]
     Active Substance: IVERMECTIN
     Indication: ACARODERMATITIS
     Dosage: DAILY DOSAGE UNKNOWN
     Route: 048
     Dates: start: 20140821

REACTIONS (2)
  - Device related infection [Fatal]
  - Acarodermatitis [Fatal]

NARRATIVE: CASE EVENT DATE: 20140911
